FAERS Safety Report 22629428 (Version 1)
Quarter: 2023Q2

REPORT INFORMATION
  Report Type: Spontaneous
  Country: US (occurrence: None)
  Receive Date: 20230619
  Receipt Date: 20230619
  Transmission Date: 20230722
  Serious: Yes (Death, Disabling)
  Sender: FDA-Public Use
  Company Number: None

PATIENT
  Sex: Male

DRUGS (1)
  1. MYOBLOC [Suspect]
     Active Substance: RIMABOTULINUMTOXINB
     Indication: Saliva altered
     Dosage: OTHER STRENGTH : 2500/0.5 DOSAGE FO;?OTHER QUANTITY : 2,500/0.5;?FREQUENCY : ONCE;?
     Route: 030
     Dates: start: 202305

REACTIONS (2)
  - Amyotrophic lateral sclerosis [None]
  - Disease complication [None]
